FAERS Safety Report 10478595 (Version 1)
Quarter: 2014Q3

REPORT INFORMATION
  Report Type: Spontaneous
  Country: US (occurrence: None)
  Receive Date: 20140924
  Receipt Date: 20140924
  Transmission Date: 20150326
  Serious: Yes (Life-Threatening, Hospitalization, Other)
  Sender: FDA-Public Use
  Company Number: LH201400255

PATIENT
  Age: 0 Day
  Sex: Male

DRUGS (1)
  1. MAKENA [Suspect]
     Active Substance: HYDROXYPROGESTERONE CAPROATE
     Indication: EXPOSURE DURING PREGNANCY
     Dates: start: 201405, end: 201408

REACTIONS (4)
  - Premature baby [None]
  - Maternal drugs affecting foetus [None]
  - Foetal heart rate deceleration abnormality [None]
  - Caesarean section [None]

NARRATIVE: CASE EVENT DATE: 20140905
